FAERS Safety Report 24035835 (Version 1)
Quarter: 2024Q3

REPORT INFORMATION
  Report Type: Spontaneous
  Country: US (occurrence: US)
  Receive Date: 20240701
  Receipt Date: 20240701
  Transmission Date: 20241016
  Serious: No
  Sender: MYLAN
  Company Number: US-MYLANLABS-2024M1060703

PATIENT
  Sex: Female

DRUGS (2)
  1. ZOLOFT [Interacting]
     Active Substance: SERTRALINE HYDROCHLORIDE
     Indication: Product used for unknown indication
     Dosage: UNK
     Route: 065
  2. SYNTHROID [Interacting]
     Active Substance: LEVOTHYROXINE SODIUM
     Indication: Thyroid disorder
     Dosage: 100 MICROGRAM
     Route: 065

REACTIONS (4)
  - Delusion [Unknown]
  - Anxiety [Unknown]
  - Drug interaction [Unknown]
  - Adverse drug reaction [Unknown]
